FAERS Safety Report 23573849 (Version 2)
Quarter: 2024Q2

REPORT INFORMATION
  Report Type: Spontaneous
  Country: JP (occurrence: JP)
  Receive Date: 20240228
  Receipt Date: 20240506
  Transmission Date: 20240716
  Serious: Yes (Other)
  Sender: FDA-Public Use
  Company Number: JP-TAKEDA-2024TUS017911

PATIENT
  Age: 21 Year
  Sex: Male
  Weight: 64.7 kg

DRUGS (29)
  1. LIALDA [Suspect]
     Active Substance: MESALAMINE
     Indication: Colitis ulcerative
     Dosage: 2400 MILLIGRAM, Q12H
     Route: 048
     Dates: start: 20220216, end: 2022
  2. LIALDA [Suspect]
     Active Substance: MESALAMINE
     Dosage: 4800 MILLIGRAM, Q12H
     Route: 048
     Dates: start: 20220502, end: 2022
  3. LIALDA [Suspect]
     Active Substance: MESALAMINE
     Dosage: 2400 MILLIGRAM, QD
     Route: 048
     Dates: start: 20220702, end: 2022
  4. LIALDA [Suspect]
     Active Substance: MESALAMINE
     Dosage: 4800 MILLIGRAM, Q12H
     Route: 048
     Dates: start: 20220723, end: 2022
  5. LIALDA [Suspect]
     Active Substance: MESALAMINE
     Dosage: 2400 MILLIGRAM, QD
     Route: 048
     Dates: start: 20220820, end: 2023
  6. LIALDA [Suspect]
     Active Substance: MESALAMINE
     Dosage: 4800 MILLIGRAM, QD
     Route: 048
     Dates: start: 20230803, end: 2023
  7. LIALDA [Suspect]
     Active Substance: MESALAMINE
     Dosage: 2400 MILLIGRAM, QD
     Route: 048
     Dates: start: 20231027, end: 2023
  8. LIALDA [Suspect]
     Active Substance: MESALAMINE
     Dosage: 4800 MILLIGRAM, QD
     Route: 048
     Dates: start: 20231212
  9. XELJANZ [Concomitant]
     Active Substance: TOFACITINIB CITRATE
     Indication: Colitis ulcerative
     Dosage: 20 MILLIGRAM, Q12H
     Route: 065
     Dates: start: 20211218, end: 2022
  10. XELJANZ [Concomitant]
     Active Substance: TOFACITINIB CITRATE
     Dosage: 10 MILLIGRAM, Q12H
     Route: 065
     Dates: start: 20220216
  11. PREDONINE [Concomitant]
     Active Substance: PREDNISOLONE
     Indication: Colitis ulcerative
     Dosage: 30 MILLIGRAM, Q12H
     Route: 065
     Dates: start: 20210201, end: 2021
  12. PREDONINE [Concomitant]
     Active Substance: PREDNISOLONE
     Dosage: 25 MILLIGRAM, Q12H
     Route: 065
     Dates: start: 20210213, end: 2021
  13. PREDONINE [Concomitant]
     Active Substance: PREDNISOLONE
     Dosage: 20 MILLIGRAM, Q12H
     Route: 065
     Dates: start: 20210717, end: 2021
  14. PREDONINE [Concomitant]
     Active Substance: PREDNISOLONE
     Dosage: 15 MILLIGRAM, Q12H
     Route: 065
     Dates: start: 20210813, end: 2021
  15. PREDONINE [Concomitant]
     Active Substance: PREDNISOLONE
     Dosage: 40 MILLIGRAM, Q12H
     Route: 065
     Dates: start: 20220108, end: 2022
  16. PREDONINE [Concomitant]
     Active Substance: PREDNISOLONE
     Dosage: 10 MILLIGRAM, QD
     Route: 065
     Dates: start: 20220216, end: 2022
  17. PREDONINE [Concomitant]
     Active Substance: PREDNISOLONE
     Dosage: 40 MILLIGRAM, Q12H
     Route: 065
     Dates: start: 20220528, end: 2022
  18. PREDONINE [Concomitant]
     Active Substance: PREDNISOLONE
     Dosage: 20 MILLIGRAM, Q12H
     Route: 065
     Dates: start: 20220604, end: 2022
  19. PREDONINE [Concomitant]
     Active Substance: PREDNISOLONE
     Dosage: 2.5 MILLIGRAM, QD
     Route: 065
     Dates: start: 20220702, end: 2022
  20. PREDONINE [Concomitant]
     Active Substance: PREDNISOLONE
     Dosage: 20 MILLIGRAM, Q12H
     Route: 065
     Dates: start: 20220723
  21. Adalimumab bs [Concomitant]
     Dosage: 40 MILLIGRAM, 2/WEEK
     Route: 065
     Dates: start: 20220702, end: 202207
  22. Adalimumab bs [Concomitant]
     Dosage: 40 MILLIGRAM, 1/WEEK
     Route: 065
     Dates: start: 20220723, end: 2023
  23. BUDESONIDE [Concomitant]
     Active Substance: BUDESONIDE
     Dosage: 4 MILLIGRAM
     Route: 065
     Dates: start: 20220820, end: 20230120
  24. BUDESONIDE [Concomitant]
     Active Substance: BUDESONIDE
     Dosage: 4 MILLIGRAM
     Route: 065
     Dates: start: 20230413
  25. RINVOQ [Concomitant]
     Active Substance: UPADACITINIB
     Dosage: 45 MILLIGRAM, QD
     Route: 065
     Dates: start: 20230425, end: 2023
  26. RINVOQ [Concomitant]
     Active Substance: UPADACITINIB
     Dosage: 15 MILLIGRAM, QD
     Route: 065
     Dates: start: 20230707, end: 2023
  27. RINVOQ [Concomitant]
     Active Substance: UPADACITINIB
     Dosage: 30 MILLIGRAM, QD
     Route: 065
     Dates: start: 20230803, end: 2023
  28. RINVOQ [Concomitant]
     Active Substance: UPADACITINIB
     Dosage: 15 MILLIGRAM, QD
     Route: 065
     Dates: start: 20231027, end: 2023
  29. RINVOQ [Concomitant]
     Active Substance: UPADACITINIB
     Dosage: 30 MILLIGRAM, QD
     Route: 065
     Dates: start: 20231212, end: 20240111

REACTIONS (8)
  - Melaena [Unknown]
  - Large intestine erosion [Unknown]
  - Haematochezia [Unknown]
  - Colitis ulcerative [Unknown]
  - Drug ineffective [Unknown]
  - Faeces soft [Unknown]
  - Abdominal pain [Unknown]
  - Physical deconditioning [Unknown]

NARRATIVE: CASE EVENT DATE: 20220409
